FAERS Safety Report 6382947-2 (Version None)
Quarter: 2009Q3

REPORT INFORMATION
  Report Type: 
  Country: None (occurrence: None)
  Receive Date: 20090930
  Receipt Date: 20090921
  Transmission Date: 20100115
  Serious: Yes (Other)
  Sender: FDA-Public Use
  Company Number: BR-PFIZER INC-2009267471

PATIENT
  Age: 63 Year

DRUGS (3)
  1. NORVASC [Suspect]
     Indication: PROPHYLAXIS
     Dosage: 5 MG, 1X/DAY
     Route: 048
     Dates: start: 19990101
  2. SUSTRATE [Concomitant]
     Indication: PROPHYLAXIS
     Dosage: UNK
     Dates: start: 19990101
  3. CAPOTEN [Concomitant]
     Indication: PROPHYLAXIS
     Dosage: UNK
     Dates: start: 19990101

REACTIONS (6)
  - BLOOD CHOLESTEROL INCREASED [None]
  - DIZZINESS [None]
  - HEADACHE [None]
  - MALAISE [None]
  - PROSTATOMEGALY [None]
  - WEIGHT DECREASED [None]
